FAERS Safety Report 7410645-2 (Version None)
Quarter: 2011Q2

REPORT INFORMATION
  Report Type: 
  Country: None (occurrence: None)
  Receive Date: 20110413
  Receipt Date: 20101021
  Transmission Date: 20111010
  Serious: Yes (Life-Threatening, Hospitalization)
  Sender: FDA-Public Use
  Company Number: US-BAYER-201017166NA

PATIENT
  Age: 21 Year
  Sex: Female
  Weight: 46.259 kg

DRUGS (3)
  1. YAZ [Suspect]
     Indication: PRODUCT USED FOR UNKNOWN INDICATION
     Dosage: UNK UNK, UNK
     Route: 048
     Dates: start: 20060501, end: 20060801
  2. NSAID'S [Concomitant]
  3. INTRAUTERINE CONTRACEPTIVE DEVICE [Concomitant]
     Dosage: UNK
     Dates: start: 20060101

REACTIONS (1)
  - ACUTE MYOCARDIAL INFARCTION [None]
